FAERS Safety Report 20419824 (Version 1)
Quarter: 2022Q1

REPORT INFORMATION
  Report Type: Spontaneous
  Country: CN (occurrence: None)
  Receive Date: 20220203
  Receipt Date: 20220203
  Transmission Date: 20220423
  Serious: Yes (Other)
  Sender: FDA-Public Use
  Company Number: CN-ROCHE-3011509

PATIENT
  Age: 55 Year
  Sex: Female

DRUGS (14)
  1. HERCEPTIN [Suspect]
     Active Substance: TRASTUZUMAB
     Indication: Breast cancer
     Dosage: THP
     Route: 065
     Dates: start: 202004
  2. HERCEPTIN [Suspect]
     Active Substance: TRASTUZUMAB
     Dosage: TCBHP
     Route: 065
     Dates: start: 202006
  3. HERCEPTIN [Suspect]
     Active Substance: TRASTUZUMAB
     Dosage: HP
     Route: 065
     Dates: start: 202011, end: 202106
  4. PERJETA [Suspect]
     Active Substance: PERTUZUMAB
     Indication: Breast cancer
     Dosage: THP
     Route: 065
     Dates: start: 202004
  5. PERJETA [Suspect]
     Active Substance: PERTUZUMAB
     Dosage: TCBHP
     Route: 065
     Dates: start: 202006
  6. PERJETA [Suspect]
     Active Substance: PERTUZUMAB
     Dosage: HP
     Route: 065
     Dates: start: 202011, end: 202106
  7. KADCYLA [Suspect]
     Active Substance: ADO-TRASTUZUMAB EMTANSINE
     Indication: Breast cancer
     Dosage: TDM-1 DOSE REDUCTION THERAPY
     Route: 065
     Dates: start: 202010
  8. DOCETAXEL [Concomitant]
     Active Substance: DOCETAXEL
     Indication: Breast cancer
     Dosage: THP
     Route: 065
     Dates: start: 202004
  9. DOCETAXEL [Concomitant]
     Active Substance: DOCETAXEL
     Dosage: TCBHP
     Route: 065
     Dates: start: 202006
  10. CARBOPLATIN [Concomitant]
     Active Substance: CARBOPLATIN
     Indication: Breast cancer
     Dosage: TCBHP
     Route: 065
     Dates: start: 202006
  11. PYROTINIB MALEATE [Concomitant]
     Active Substance: PYROTINIB MALEATE
     Indication: Breast cancer
     Route: 065
  12. CAPECITABINE [Concomitant]
     Active Substance: CAPECITABINE
     Indication: Breast cancer
     Route: 065
  13. DOXORUBICIN [Concomitant]
     Active Substance: DOXORUBICIN
     Indication: Breast cancer
     Dosage: AC
     Route: 065
  14. CYCLOPHOSPHAMIDE [Concomitant]
     Active Substance: CYCLOPHOSPHAMIDE
     Indication: Breast cancer
     Dosage: AC
     Route: 065

REACTIONS (3)
  - Platelet count decreased [Unknown]
  - Retinal haemorrhage [Unknown]
  - Epistaxis [Unknown]
